FAERS Safety Report 23763388 (Version 1)
Quarter: 2024Q2

REPORT INFORMATION
  Report Type: Other
  Country: DE (occurrence: DE)
  Receive Date: 20240419
  Receipt Date: 20240419
  Transmission Date: 20240716
  Serious: Yes (Hospitalization, Other)
  Sender: FDA-Public Use
  Company Number: DE-AMK-274833

PATIENT

DRUGS (1)
  1. CEFIDEROCOL SULFATE TOSYLATE [Suspect]
     Active Substance: CEFIDEROCOL SULFATE TOSYLATE
     Indication: Pneumonia klebsiella
     Dosage: 2 G, 1 PER 8 HOUR
     Route: 042
     Dates: start: 20240315, end: 20240325

REACTIONS (5)
  - Klebsiella infection [Unknown]
  - Bronchospasm [Unknown]
  - Respiratory failure [Unknown]
  - Sputum purulent [Unknown]
  - Pathogen resistance [Unknown]

NARRATIVE: CASE EVENT DATE: 20240322
